FAERS Safety Report 25936549 (Version 1)
Quarter: 2025Q4

REPORT INFORMATION
  Report Type: Spontaneous
  Country: CN (occurrence: CN)
  Receive Date: 20251017
  Receipt Date: 20251017
  Transmission Date: 20260117
  Serious: Yes (Hospitalization)
  Sender: OTSUKA
  Company Number: CN-MMM-Otsuka-0NTGFRYC

PATIENT
  Age: 13 Year
  Sex: Female
  Weight: 75 kg

DRUGS (2)
  1. ABILIFY [Suspect]
     Active Substance: ARIPIPRAZOLE
     Indication: Obsessive-compulsive disorder
     Dosage: 2.5 MG, QD
     Dates: start: 20250910, end: 20251008
  2. FLUVOXAMINE MALEATE [Concomitant]
     Active Substance: FLUVOXAMINE MALEATE
     Indication: Obsessive-compulsive disorder
     Dosage: 50 MG, QD
     Dates: start: 20250910, end: 20251008

REACTIONS (1)
  - Hepatic function abnormal [Unknown]

NARRATIVE: CASE EVENT DATE: 20251009
